FAERS Safety Report 24610264 (Version 3)
Quarter: 2025Q3

REPORT INFORMATION
  Report Type: Report from Study
  Country: US (occurrence: US)
  Receive Date: 20241112
  Receipt Date: 20250802
  Transmission Date: 20251021
  Serious: Yes (Hospitalization, Other)
  Sender: ALEXION PHARMACEUTICALS
  Company Number: US-AstraZeneca-CH-00740617A

PATIENT
  Age: 88 Year
  Sex: Female

DRUGS (1)
  1. SOLIRIS [Suspect]
     Active Substance: ECULIZUMAB
     Indication: Myasthenia gravis
     Route: 065

REACTIONS (10)
  - Gastric haemorrhage [Recovering/Resolving]
  - Bronchitis [Recovering/Resolving]
  - Hiatus hernia [Recovering/Resolving]
  - Full blood count decreased [Unknown]
  - Blood iron decreased [Unknown]
  - Haemoptysis [Unknown]
  - Hyperchlorhydria [Unknown]
  - Inappropriate schedule of product administration [Unknown]
  - Dysphonia [Unknown]
  - Arthralgia [Recovering/Resolving]

NARRATIVE: CASE EVENT DATE: 20240701
